FAERS Safety Report 21147881 (Version 1)
Quarter: 2022Q3

REPORT INFORMATION
  Report Type: Spontaneous
  Country: US (occurrence: US)
  Receive Date: 20220729
  Receipt Date: 20220729
  Transmission Date: 20221026
  Serious: Yes (Hospitalization, Other)
  Sender: FDA-Public Use
  Company Number: US-APOTEX-2022AP010422

PATIENT
  Age: 31 Year
  Sex: Female

DRUGS (1)
  1. FINGOLIMOD [Suspect]
     Active Substance: FINGOLIMOD
     Indication: Relapsing-remitting multiple sclerosis
     Dosage: UNK
     Route: 065

REACTIONS (4)
  - Intracranial pressure increased [Recovering/Resolving]
  - Meningitis cryptococcal [Recovering/Resolving]
  - Disseminated cryptococcosis [Recovering/Resolving]
  - Therapy cessation [Unknown]
